FAERS Safety Report 9192591 (Version 1)
Quarter: 2013Q1

REPORT INFORMATION
  Report Type: Spontaneous
  Country: IT (occurrence: None)
  Receive Date: 20130325
  Receipt Date: 20130325
  Transmission Date: 20140127
  Serious: Yes (Other)
  Sender: FDA-Public Use
  Company Number: AUR-APL-2013-02367

PATIENT
  Age: 64 Year
  Sex: Female
  Weight: 72 kg

DRUGS (1)
  1. AMOXICILLIN (AMOXICILLIN) [Suspect]
     Indication: SURGERY
     Dosage: ( DOSAGE FORMS, 1 D), ORAL
     Route: 048
     Dates: start: 20121217, end: 20121224

REACTIONS (3)
  - Swelling [None]
  - Pruritus [None]
  - Oedema [None]
